FAERS Safety Report 8491498 (Version 4)
Quarter: 2013Q1

REPORT INFORMATION
  Report Type: Spontaneous
  Country: US (occurrence: US)
  Receive Date: 20120403
  Receipt Date: 20130307
  Transmission Date: 20140127
  Serious: Yes (Death, Hospitalization)
  Sender: FDA-Public Use
  Company Number: US-B.I. PHARMACEUTICALS,INC./RIDGEFIELD-2012-BP-06089BP

PATIENT
  Age: 82 Year
  Sex: Male
  Weight: 70.31 kg

DRUGS (18)
  1. PRADAXA [Suspect]
     Indication: ANTICOAGULANT THERAPY
     Dosage: 150 MG
     Dates: start: 20110223, end: 20111109
  2. PRADAXA [Suspect]
     Indication: ATRIAL FIBRILLATION
  3. LORAZEPAM [Concomitant]
     Dosage: 10 MG
     Route: 048
     Dates: start: 1982
  4. LABETALOL [Concomitant]
     Dates: start: 1982
  5. AMLODIPINE [Concomitant]
     Dates: start: 1982
  6. BENADRYL [Concomitant]
     Dosage: 25 MG
     Route: 048
  7. CATAPRES [Concomitant]
     Indication: HYPERTENSION
  8. ASPIRIN [Concomitant]
     Indication: ATRIAL FIBRILLATION
     Dosage: 81 MG
     Route: 048
  9. IMDUR ER [Concomitant]
  10. LOPRESSOR [Concomitant]
     Dosage: 10 MG
  11. GLYBURIDE [Concomitant]
     Dosage: 2.5 MG
     Route: 048
  12. LASIX [Concomitant]
     Dosage: 40 MG
  13. CARVEDILOL [Concomitant]
  14. TAMSULOSIN HCL [Concomitant]
  15. SIMVASTATIN [Concomitant]
  16. HYDRALAZINE HCL [Concomitant]
  17. SPIRONOLACTONE [Concomitant]
  18. POTASSIUM CHLORIDE [Concomitant]

REACTIONS (6)
  - Diverticulum intestinal haemorrhagic [Fatal]
  - Haemorrhagic anaemia [Unknown]
  - Hypovolaemic shock [Unknown]
  - Thrombocytopenia [Unknown]
  - Pain [Unknown]
  - Emotional distress [Unknown]
